FAERS Safety Report 23113031 (Version 1)
Quarter: 2023Q4

REPORT INFORMATION
  Report Type: Spontaneous
  Country: US (occurrence: US)
  Receive Date: 20231027
  Receipt Date: 20231027
  Transmission Date: 20240110
  Serious: No
  Sender: FDA-Public Use
  Company Number: US-ELI_LILLY_AND_COMPANY-US202310015208

PATIENT
  Sex: Female

DRUGS (1)
  1. TRULICITY [Suspect]
     Active Substance: DULAGLUTIDE
     Indication: Insulin resistance
     Dosage: 1.5 MG, UNKNOWN
     Route: 065
     Dates: start: 2022

REACTIONS (2)
  - Hunger [Unknown]
  - Abdominal discomfort [Unknown]
